FAERS Safety Report 7530939-X (Version None)
Quarter: 2011Q2

REPORT INFORMATION
  Report Type: 
  Country: None (occurrence: None)
  Receive Date: 20110608
  Receipt Date: 20110526
  Transmission Date: 20111010
  Serious: Yes (Death, Hospitalization, Other)
  Sender: FDA-Public Use
  Company Number: CA-ELI_LILLY_AND_COMPANY-CA201105007573

PATIENT
  Sex: Female
  Weight: 103 kg

DRUGS (4)
  1. ZYPREXA ZYDIS [Suspect]
     Indication: SCHIZOPHRENIA
     Dosage: 10 MG, EACH EVENING
  2. CELEXA [Concomitant]
  3. WELLBUTRIN [Concomitant]
  4. METHYLPHENIDATE [Concomitant]

REACTIONS (10)
  - DIABETES MELLITUS [None]
  - HYPERTENSION [None]
  - CONVULSION [None]
  - SYNCOPE [None]
  - DEATH [None]
  - ASTHMA [None]
  - PAIN IN EXTREMITY [None]
  - CELLULITIS [None]
  - INTENTIONAL OVERDOSE [None]
  - WEIGHT INCREASED [None]
